FAERS Safety Report 21809815 (Version 1)
Quarter: 2023Q1

REPORT INFORMATION
  Report Type: Spontaneous
  Country: TR (occurrence: TR)
  Receive Date: 20230103
  Receipt Date: 20230103
  Transmission Date: 20230418
  Serious: Yes (Life-Threatening, Other)
  Sender: FDA-Public Use
  Company Number: TR-ORGANON-O2301TUR000096

PATIENT
  Age: 5 Year
  Sex: Male
  Weight: 24 kg

DRUGS (1)
  1. SINGULAIR [Suspect]
     Active Substance: MONTELUKAST SODIUM
     Indication: Allergic respiratory disease
     Dosage: UNK
     Route: 048
     Dates: start: 20221129

REACTIONS (3)
  - Completed suicide [Unknown]
  - Restlessness [Unknown]
  - Paraesthesia [Unknown]

NARRATIVE: CASE EVENT DATE: 20221221
